FAERS Safety Report 15880858 (Version 1)
Quarter: 2019Q1

REPORT INFORMATION
  Report Type: Spontaneous
  Country: JP (occurrence: JP)
  Receive Date: 20190128
  Receipt Date: 20190128
  Transmission Date: 20190417
  Serious: Yes (Other)
  Sender: FDA-Public Use
  Company Number: JP-UCBSA-2018051428

PATIENT
  Age: 34 Year
  Sex: Female
  Weight: 74 kg

DRUGS (17)
  1. PREDNISOLONE. [Suspect]
     Active Substance: PREDNISOLONE
     Indication: PRODUCT USED FOR UNKNOWN INDICATION
     Dosage: 20 MG, ONCE DAILY (QD)
     Route: 048
     Dates: start: 20180320, end: 20180404
  2. CIMZIA [Suspect]
     Active Substance: CERTOLIZUMAB PEGOL
     Indication: STILL^S DISEASE
     Dosage: 200 MG, EV 2 WEEKS(QOW)
     Route: 058
     Dates: start: 20180301, end: 20181001
  3. PREDNISOLONE. [Suspect]
     Active Substance: PREDNISOLONE
     Dosage: 17 MG, ONCE DAILY (QD)
     Route: 048
     Dates: start: 20180824, end: 20180919
  4. PREDNISOLONE. [Suspect]
     Active Substance: PREDNISOLONE
     Dosage: 15 MG, ONCE DAILY (QD)
     Route: 048
     Dates: start: 20180510, end: 20180711
  5. PREDNISOLONE. [Suspect]
     Active Substance: PREDNISOLONE
     Dosage: 17 MG, ONCE DAILY (QD)
     Route: 048
     Dates: start: 20180426, end: 20180502
  6. PREDNISOLONE. [Suspect]
     Active Substance: PREDNISOLONE
     Dosage: 16 MG, ONCE DAILY (QD)
     Route: 048
     Dates: start: 20180920, end: 20181003
  7. SODIUM RABEPRAZOLE [Concomitant]
     Active Substance: RABEPRAZOLE SODIUM
     Indication: PRODUCT USED FOR UNKNOWN INDICATION
     Dosage: 10 MG, ONCE DAILY (QD)
     Route: 048
  8. PREDNISOLONE. [Suspect]
     Active Substance: PREDNISOLONE
     Dosage: 18 MG, ONCE DAILY (QD)
     Route: 048
     Dates: start: 20180419, end: 20180425
  9. PREDNISOLONE. [Suspect]
     Active Substance: PREDNISOLONE
     Dosage: 19 MG, ONCE DAILY (QD)
     Route: 048
     Dates: start: 20180726, end: 20180808
  10. INSULIN [Concomitant]
     Active Substance: INSULIN NOS
     Indication: DIABETES MELLITUS
  11. CIMZIA [Suspect]
     Active Substance: CERTOLIZUMAB PEGOL
     Indication: JUVENILE IDIOPATHIC ARTHRITIS
  12. PREDNISOLONE. [Suspect]
     Active Substance: PREDNISOLONE
     Dosage: 15 MG, ONCE DAILY (QD)
     Route: 048
     Dates: start: 20181004
  13. CIMZIA [Suspect]
     Active Substance: CERTOLIZUMAB PEGOL
     Indication: OFF LABEL USE
  14. PREDNISOLONE. [Suspect]
     Active Substance: PREDNISOLONE
     Dosage: 19 MG, ONCE DAILY (QD)
     Route: 048
     Dates: start: 20180405, end: 20180418
  15. PREDNISOLONE. [Suspect]
     Active Substance: PREDNISOLONE
     Dosage: 20 MG, ONCE DAILY (QD)
     Route: 048
     Dates: start: 20180712, end: 20180725
  16. PREDNISOLONE. [Suspect]
     Active Substance: PREDNISOLONE
     Dosage: 18 MG, ONCE DAILY (QD)
     Route: 048
     Dates: start: 20180809, end: 20180823
  17. PREDNISOLONE. [Suspect]
     Active Substance: PREDNISOLONE
     Dosage: 16 MG, ONCE DAILY (QD)
     Route: 048
     Dates: start: 20180503, end: 20180509

REACTIONS (4)
  - Diabetes mellitus [Recovered/Resolved]
  - Exposure during pregnancy [Unknown]
  - Breast feeding [Unknown]
  - Off label use [Unknown]

NARRATIVE: CASE EVENT DATE: 20180301
